FAERS Safety Report 9639368 (Version 5)
Quarter: 2014Q1

REPORT INFORMATION
  Report Type: Report from Study
  Country: FR (occurrence: FR)
  Receive Date: 20131022
  Receipt Date: 20140122
  Transmission Date: 20141002
  Serious: Yes (Death, Hospitalization)
  Sender: FDA-Public Use
  Company Number: FR-EXELIXIS-XL18413003477

PATIENT
  Age: 56 Year
  Sex: Male
  Weight: 79.2 kg

DRUGS (12)
  1. XL184 [Suspect]
     Indication: PROSTATE CANCER
     Dosage: 60 MG, QD
     Route: 048
     Dates: start: 20130730, end: 2013
  2. XL184 [Suspect]
     Dosage: 40 MG, QD
     Route: 048
     Dates: start: 2013, end: 20131004
  3. XL184 [Suspect]
     Indication: PROSTATE CANCER
     Dosage: 5 MG, BID
     Route: 048
     Dates: start: 20130730, end: 20131004
  4. KALEORID [Concomitant]
  5. ENANTONE [Concomitant]
  6. SKENAN [Concomitant]
  7. JOSIR [Concomitant]
  8. CALCIDOSE [Concomitant]
  9. LEXOMIL [Concomitant]
  10. PARACETAMOL [Concomitant]
  11. IXPRIM [Concomitant]
  12. XGEVA [Concomitant]

REACTIONS (3)
  - Diabetes mellitus [Recovered/Resolved with Sequelae]
  - Cushing^s syndrome [Not Recovered/Not Resolved]
  - Prostate cancer [Fatal]
